FAERS Safety Report 7987637-8 (Version None)
Quarter: 2011Q4

REPORT INFORMATION
  Report Type: 
  Country: None (occurrence: None)
  Receive Date: 20111216
  Receipt Date: 20101102
  Transmission Date: 20120403
  Serious: No
  Sender: FDA-Public Use
  Company Number: US-BRISTOL-MYERS SQUIBB COMPANY-15321540

PATIENT
  Age: 10 Year
  Sex: Female

DRUGS (2)
  1. ABILIFY [Suspect]
     Indication: BIPOLAR DISORDER
     Dosage: MEDICATION NOT TAKEN FOR 1 MONTH.
  2. ABILIFY [Suspect]
     Indication: BORDERLINE PERSONALITY DISORDER
     Dosage: MEDICATION NOT TAKEN FOR 1 MONTH.

REACTIONS (2)
  - DYSKINESIA [None]
  - MEDICATION ERROR [None]
